FAERS Safety Report 15310100 (Version 1)
Quarter: 2018Q3

REPORT INFORMATION
  Report Type: Spontaneous
  Country: US (occurrence: US)
  Receive Date: 20180823
  Receipt Date: 20180823
  Transmission Date: 20181010
  Serious: No
  Sender: FDA-Public Use
  Company Number: US-PFIZER INC-2018334611

PATIENT
  Age: 47 Year
  Sex: Female
  Weight: 49 kg

DRUGS (1)
  1. XELJANZ [Suspect]
     Active Substance: TOFACITINIB CITRATE
     Indication: RHEUMATOID ARTHRITIS
     Dosage: 5 MG, 2X/DAY(TAKE 1 TABLET BY MOUTH)
     Route: 048
     Dates: start: 2016

REACTIONS (4)
  - Impaired healing [Unknown]
  - Wound secretion [Unknown]
  - Blood cholesterol increased [Unknown]
  - Wound [Unknown]
